FAERS Safety Report 5113457-8 (Version None)
Quarter: 2006Q3

REPORT INFORMATION
  Report Type: 
  Country: None (occurrence: None)
  Receive Date: 20060920
  Receipt Date: 20060904
  Transmission Date: 20061208
  Serious: Yes (Other)
  Sender: FDA-Public Use
  Company Number: A-CH2006-12814

PATIENT
  Age: 61 Year
  Sex: Female
  Weight: 57 kg

DRUGS (13)
  1. MIGLUSTAT(MIGLUSTAT) CAPSULE [Suspect]
     Indication: GAUCHER'S DISEASE
     Dosage: SEE IMAGE
     Route: 048
     Dates: start: 19991209, end: 20001121
  2. MIGLUSTAT(MIGLUSTAT) CAPSULE [Suspect]
     Indication: GAUCHER'S DISEASE
     Dosage: SEE IMAGE
     Route: 048
     Dates: start: 20001122, end: 20010213
  3. MIGLUSTAT(MIGLUSTAT) CAPSULE [Suspect]
     Indication: GAUCHER'S DISEASE
     Dosage: SEE IMAGE
     Route: 048
     Dates: start: 20010214, end: 20030410
  4. MIGLUSTAT(MIGLUSTAT) CAPSULE [Suspect]
     Indication: GAUCHER'S DISEASE
     Dosage: SEE IMAGE
     Route: 048
     Dates: start: 20030411
  5. EVISTA [Concomitant]
  6. CALCIUM CITRATE [Concomitant]
  7. ANTHROCHOICE [Concomitant]
  8. CETIRIZINE HCL [Concomitant]
  9. ACETAMINOPHEN W/ CODEINE [Concomitant]
  10. VITAMINS [Concomitant]
  11. FYBOGEL (ISPAGHULA) [Concomitant]
  12. AGIOLAX (SENNA FRUIT, PLANTAGO SEED, CHAMOMILE) [Concomitant]
  13. SUDAFED (PSEUDOPHEDRINE HYDROCHLORIDE) [Concomitant]

REACTIONS (13)
  - ABDOMINAL PAIN [None]
  - BLOOD FOLATE DECREASED [None]
  - COLONIC POLYP [None]
  - CONSTIPATION [None]
  - DISEASE RECURRENCE [None]
  - DYSPEPSIA [None]
  - GASTRIC POLYPS [None]
  - GASTROOESOPHAGEAL REFLUX DISEASE [None]
  - HAEMOGLOBIN DECREASED [None]
  - INTESTINAL POLYP [None]
  - PLATELET COUNT DECREASED [None]
  - REFLUX OESOPHAGITIS [None]
  - SPLENOMEGALY [None]
